FAERS Safety Report 25528561 (Version 1)
Quarter: 2025Q3

REPORT INFORMATION
  Report Type: Spontaneous
  Country: GB (occurrence: GB)
  Receive Date: 20250708
  Receipt Date: 20250708
  Transmission Date: 20251020
  Serious: Yes (Disabling, Other)
  Sender: HETERO
  Company Number: None

PATIENT
  Age: 56 Year
  Sex: Male
  Weight: 81 kg

DRUGS (3)
  1. FINASTERIDE [Suspect]
     Active Substance: FINASTERIDE
     Indication: Prostatomegaly
     Route: 065
  2. TAMSULOSIN [Concomitant]
     Active Substance: TAMSULOSIN
     Indication: Product used for unknown indication
     Route: 065
  3. SOLIFENACIN [Concomitant]
     Active Substance: SOLIFENACIN
     Indication: Prostatomegaly
     Route: 065

REACTIONS (5)
  - Semen volume decreased [Not Recovered/Not Resolved]
  - Loss of libido [Not Recovered/Not Resolved]
  - Erectile dysfunction [Not Recovered/Not Resolved]
  - Depression [Not Recovered/Not Resolved]
  - Anxiety [Not Recovered/Not Resolved]

NARRATIVE: CASE EVENT DATE: 20250301
